FAERS Safety Report 6502436-1 (Version None)
Quarter: 2009Q4

REPORT INFORMATION
  Report Type: 
  Country: None (occurrence: None)
  Receive Date: 20091207
  Receipt Date: 20090728
  Transmission Date: 20100525
  Serious: Yes (Other)
  Sender: FDA-Public Use
  Company Number: F03200900086

PATIENT
  Age: 77 Year
  Sex: Female

DRUGS (27)
  1. FLUDARABINE PHOSPHATE [Suspect]
     Indication: LYMPHOPLASMACYTOID LYMPHOMA/IMMUNOCYTOMA STAGE IV
     Dosage: 30 MILLIGRAM(S);DAILY;ORAL ; 30 MILLIGRAM(S);DAILY;ORAL ; 30 MILLIGRAM(S);DAILY;ORAL
     Route: 048
     Dates: start: 20080926, end: 20080930
  2. FLUDARABINE PHOSPHATE [Suspect]
     Indication: LYMPHOPLASMACYTOID LYMPHOMA/IMMUNOCYTOMA STAGE IV
     Dosage: 30 MILLIGRAM(S);DAILY;ORAL ; 30 MILLIGRAM(S);DAILY;ORAL ; 30 MILLIGRAM(S);DAILY;ORAL
     Route: 048
     Dates: start: 20081115, end: 20081119
  3. FLUDARABINE PHOSPHATE [Suspect]
     Indication: LYMPHOPLASMACYTOID LYMPHOMA/IMMUNOCYTOMA STAGE IV
     Dosage: 30 MILLIGRAM(S);DAILY;ORAL ; 30 MILLIGRAM(S);DAILY;ORAL ; 30 MILLIGRAM(S);DAILY;ORAL
     Route: 048
     Dates: start: 20081229, end: 20090102
  4. ITRACONAZOLE [Suspect]
     Indication: STOMATITIS
     Dosage: 20 MILLILITRE9S);DAILY;ORAL ; 20 MILLILITRE(S);DAILY;ORAL
     Route: 048
     Dates: start: 20081003, end: 20081007
  5. ITRACONAZOLE [Suspect]
     Indication: STOMATITIS
     Dosage: 20 MILLILITRE9S);DAILY;ORAL ; 20 MILLILITRE(S);DAILY;ORAL
     Route: 048
     Dates: start: 20081117, end: 20081123
  6. RITUXAN [Suspect]
     Indication: LYMPHOPLASMACYTOID LYMPHOMA/IMMUNOCYTOMA STAGE IV
     Dosage: SEE IMAGE
     Route: 042
     Dates: start: 20080917, end: 20080917
  7. RITUXAN [Suspect]
     Indication: LYMPHOPLASMACYTOID LYMPHOMA/IMMUNOCYTOMA STAGE IV
     Dosage: SEE IMAGE
     Route: 042
     Dates: start: 20080922, end: 20080922
  8. RITUXAN [Suspect]
     Indication: LYMPHOPLASMACYTOID LYMPHOMA/IMMUNOCYTOMA STAGE IV
     Dosage: SEE IMAGE
     Route: 042
     Dates: start: 20081111, end: 20081111
  9. AZUNOL /00317302/ [Concomitant]
  10. DEXAMETHASONE [Concomitant]
  11. BAKTAR [Concomitant]
  12. OMEPRAL [Concomitant]
  13. ALLOPURINOL [Concomitant]
  14. LASIX [Concomitant]
  15. PREDONINE [Concomitant]
  16. LOXONIN [Concomitant]
  17. CHLORPHENIRAMINE [Concomitant]
  18. DEPAS [Concomitant]
  19. ALDACTONE [Concomitant]
  20. PLATELETS [Concomitant]
  21. BLOOD CELLS, PACKED HUMAN [Concomitant]
  22. METHYLPREDNISOLONE SODIUM SUCCINATE [Concomitant]
  23. CRAVIT [Concomitant]
  24. LAC B [Concomitant]
  25. ITRIZOLE [Concomitant]
  26. DESFERAL [Concomitant]
  27. PREV MEDS = UNKNOWN [Concomitant]

REACTIONS (4)
  - ALANINE AMINOTRANSFERASE INCREASED [None]
  - BLOOD POTASSIUM DECREASED [None]
  - HEPATIC FUNCTION ABNORMAL [None]
  - NEUTROPHIL COUNT DECREASED [None]
